FAERS Safety Report 20747095 (Version 1)
Quarter: 2022Q2

REPORT INFORMATION
  Report Type: Spontaneous
  Country: US (occurrence: US)
  Receive Date: 20220425
  Receipt Date: 20220425
  Transmission Date: 20220720
  Serious: No
  Sender: FDA-Public Use
  Company Number: US-PFIZER INC-202200342741

PATIENT
  Age: 73 Year
  Sex: Female

DRUGS (1)
  1. IBRANCE [Suspect]
     Active Substance: PALBOCICLIB
     Dosage: 125 MG
     Dates: start: 20220217

REACTIONS (11)
  - Nasopharyngitis [Unknown]
  - Rhinorrhoea [Unknown]
  - Pyrexia [Unknown]
  - Rash [Recovering/Resolving]
  - Chills [Unknown]
  - Hyperhidrosis [Unknown]
  - Feeling of body temperature change [Unknown]
  - Pulmonary pain [Unknown]
  - Dry skin [Recovering/Resolving]
  - Skin exfoliation [Recovering/Resolving]
  - Rash pruritic [Recovering/Resolving]

NARRATIVE: CASE EVENT DATE: 20220201
